FAERS Safety Report 15976113 (Version 1)
Quarter: 2019Q1

REPORT INFORMATION
  Report Type: Spontaneous
  Country: US (occurrence: US)
  Receive Date: 20190218
  Receipt Date: 20190218
  Transmission Date: 20190418
  Serious: No
  Sender: FDA-Public Use
  Company Number: US-PFIZER INC-2019064920

PATIENT
  Age: 75 Year
  Sex: Male
  Weight: 102.51 kg

DRUGS (1)
  1. TIKOSYN [Suspect]
     Active Substance: DOFETILIDE
     Indication: HEART RATE IRREGULAR
     Dosage: UNK, 2X/DAY(TAKES THE CAPSULE TWICE A DAY)
     Route: 048
     Dates: start: 20161030

REACTIONS (2)
  - Sinusitis [Unknown]
  - Malaise [Unknown]
